FAERS Safety Report 20205938 (Version 3)
Quarter: 2022Q2

REPORT INFORMATION
  Report Type: Report from Study
  Country: CA (occurrence: CA)
  Receive Date: 20211220
  Receipt Date: 20220407
  Transmission Date: 20220720
  Serious: Yes (Other)
  Sender: FDA-Public Use
  Company Number: CA-JNJFOC-20210928952

PATIENT
  Age: 20 Year
  Sex: Female
  Weight: 61 kg

DRUGS (1)
  1. REMICADE [Suspect]
     Active Substance: INFLIXIMAB
     Indication: Crohn^s disease
     Dosage: PATIENT RECEIVED 2ND INFUSION ON 22-SEP-2021.
     Route: 042
     Dates: start: 20210910, end: 20211214

REACTIONS (20)
  - Impaired healing [Not Recovered/Not Resolved]
  - Crohn^s disease [Recovering/Resolving]
  - Lupus-like syndrome [Unknown]
  - Arthralgia [Not Recovered/Not Resolved]
  - Erythema [Recovered/Resolved]
  - Presyncope [Unknown]
  - Muscle spasms [Unknown]
  - Defaecation urgency [Unknown]
  - Hypersensitivity [Unknown]
  - Infusion related reaction [Unknown]
  - Fatigue [Unknown]
  - Headache [Not Recovered/Not Resolved]
  - Sinusitis [Unknown]
  - Gait disturbance [Unknown]
  - Peripheral swelling [Unknown]
  - Skin laceration [Unknown]
  - Middle insomnia [Unknown]
  - Constipation [Unknown]
  - Arthritis [Unknown]
  - Skin irritation [Recovered/Resolved]

NARRATIVE: CASE EVENT DATE: 20210101
